FAERS Safety Report 8352268-7 (Version None)
Quarter: 2012Q2

REPORT INFORMATION
  Report Type: 
  Country: None (occurrence: None)
  Receive Date: 20120511
  Receipt Date: 20120502
  Transmission Date: 20120825
  Serious: Yes (Other)
  Sender: FDA-Public Use
  Company Number: TW-ACCORD-011612

PATIENT
  Age: 39 Year
  Sex: Male

DRUGS (3)
  1. SULPIRIDE [Concomitant]
     Indication: DEPRESSIVE SYMPTOM
  2. VALPROIC ACID [Concomitant]
     Indication: DEPRESSIVE SYMPTOM
  3. QUETIAPINE FUMARATE [Suspect]
     Indication: BIPOLAR DISORDER

REACTIONS (2)
  - DIABETES MELLITUS [None]
  - HYPERGLYCAEMIC HYPEROSMOLAR NONKETOTIC SYNDROME [None]
